FAERS Safety Report 17687938 (Version 1)
Quarter: 2020Q2

REPORT INFORMATION
  Report Type: Spontaneous
  Country: US (occurrence: US)
  Receive Date: 20200421
  Receipt Date: 20200421
  Transmission Date: 20200714
  Serious: Yes (Other)
  Sender: FDA-Public Use
  Company Number: US-VELOXIS PHARMACEUTICALS-2020VELUS-000355

PATIENT
  Age: 44 Year
  Sex: Female

DRUGS (1)
  1. ENVARSUS XR [Suspect]
     Active Substance: TACROLIMUS
     Indication: PROPHYLAXIS AGAINST TRANSPLANT REJECTION
     Dosage: 0.75 MG, QD
     Route: 065
     Dates: start: 201910

REACTIONS (2)
  - Kidney transplant rejection [Unknown]
  - Weight increased [Unknown]

NARRATIVE: CASE EVENT DATE: 202001
